FAERS Safety Report 18948161 (Version 2)
Quarter: 2021Q2

REPORT INFORMATION
  Report Type: Spontaneous
  Country: US (occurrence: US)
  Receive Date: 20210226
  Receipt Date: 20210521
  Transmission Date: 20210717
  Serious: No
  Sender: FDA-Public Use
  Company Number: US-PFIZER INC-2021185339

PATIENT
  Age: 73 Year
  Sex: Male

DRUGS (2)
  1. RETACRIT [Suspect]
     Active Substance: EPOETIN ALFA-EPBX
     Indication: ANAEMIA
  2. RETACRIT [Suspect]
     Active Substance: EPOETIN ALFA-EPBX
     Indication: CHRONIC KIDNEY DISEASE
     Dosage: TWO TABLETS SQ (SUBCUTANEOUS) WEEKLY
     Route: 058

REACTIONS (2)
  - Hypoacusis [Unknown]
  - Product prescribing error [Unknown]
